FAERS Safety Report 10893304 (Version 2)
Quarter: 2015Q1

REPORT INFORMATION
  Report Type: Report from Study
  Country: US (occurrence: US)
  Receive Date: 20150306
  Receipt Date: 20150319
  Transmission Date: 20150721
  Serious: Yes (Hospitalization)
  Sender: FDA-Public Use
  Company Number: US-ACTELION-A-NJ2015-112031

PATIENT
  Age: 15 Month
  Sex: Female

DRUGS (7)
  1. SILDENAFIL. [Concomitant]
     Active Substance: SILDENAFIL
     Dosage: 10 MG, TID
     Dates: start: 201310
  2. SPIRONOLACTONE. [Concomitant]
     Active Substance: SPIRONOLACTONE
     Dosage: 4.8 MG, BID
     Dates: start: 201403
  3. DIURIL [Concomitant]
     Active Substance: CHLOROTHIAZIDE
     Dosage: 75 MG, BID
     Dates: start: 201403
  4. OXYGEN. [Concomitant]
     Active Substance: OXYGEN
  5. ALBUTEROL. [Concomitant]
     Active Substance: ALBUTEROL
     Dosage: 108 MCG, 2 PUFFS Q4H, PRN
     Dates: start: 201410
  6. TRACLEER [Suspect]
     Active Substance: BOSENTAN\BOSENTAN MONOHYDRATE
     Indication: PULMONARY ARTERIAL HYPERTENSION
     Dosage: 15.625 MG, BID
     Route: 048
     Dates: start: 20140715
  7. FLOVENT [Concomitant]
     Active Substance: FLUTICASONE PROPIONATE
     Dosage: 44 MCG, 2 PUFFS, BID
     Dates: start: 201410

REACTIONS (10)
  - Gastrointestinal disorder [Recovering/Resolving]
  - Cardiac arrest [Recovering/Resolving]
  - Malaise [Recovering/Resolving]
  - Electrolyte imbalance [Recovering/Resolving]
  - Extracorporeal membrane oxygenation [Recovering/Resolving]
  - Pneumothorax [Recovering/Resolving]
  - Respiratory failure [Recovering/Resolving]
  - Pneumonia [Recovering/Resolving]
  - Dehydration [Recovering/Resolving]
  - Aspiration [Recovering/Resolving]
